FAERS Safety Report 7207348-6 (Version None)
Quarter: 2010Q4

REPORT INFORMATION
  Report Type: 
  Country: None (occurrence: None)
  Receive Date: 20101217
  Receipt Date: 20101208
  Transmission Date: 20110411
  Serious: Yes (Other)
  Sender: FDA-Public Use
  Company Number: 2010EU006659

PATIENT
  Age: 17 Year
  Sex: Female

DRUGS (3)
  1. PROTOPIC [Suspect]
     Indication: DERMATITIS ATOPIC
     Dosage: TOPICAL
     Route: 061
     Dates: end: 20100801
  2. ORBENIN CAP [Concomitant]
  3. CLARITIN [Concomitant]

REACTIONS (1)
  - INTERSTITIAL LUNG DISEASE [None]
